FAERS Safety Report 21232761 (Version 1)
Quarter: 2022Q3

REPORT INFORMATION
  Report Type: Report from Study
  Country: US (occurrence: US)
  Receive Date: 20220819
  Receipt Date: 20220819
  Transmission Date: 20221026
  Serious: Yes (Other)
  Sender: FDA-Public Use
  Company Number: US-UCBSA-2022047741

PATIENT
  Sex: Male

DRUGS (1)
  1. BRIVARACETAM [Suspect]
     Active Substance: BRIVARACETAM
     Indication: Seizure
     Dosage: 50 MG 1 TABLET AM AND 2 AT NIGHT

REACTIONS (2)
  - Surgery [Unknown]
  - Seizure [Unknown]

NARRATIVE: CASE EVENT DATE: 20220101
